FAERS Safety Report 8575848-2 (Version None)
Quarter: 2012Q3

REPORT INFORMATION
  Report Type: 
  Country: None (occurrence: None)
  Receive Date: 20120807
  Receipt Date: 20111027
  Transmission Date: 20120928
  Serious: Yes (Death, Hospitalization, Other)
  Sender: FDA-Public Use
  Company Number: DE-CELGENEUS-062-50794-12053180

PATIENT
  Age: 74 Year
  Sex: Female
  Weight: 68 kg

DRUGS (8)
  1. VIDAZA [Suspect]
     Dosage: 75 MILLIGRAM/SQ. METER
     Route: 065
     Dates: start: 20110614, end: 20110616
  2. PLATELETS [Concomitant]
     Route: 041
     Dates: start: 20110615
  3. VIDAZA [Suspect]
     Dosage: 75 MILLIGRAM/SQ. METER
     Route: 065
     Dates: start: 20110520
  4. VIDAZA [Suspect]
     Dosage: 75 MILLIGRAM/SQ. METER
     Route: 065
     Dates: start: 20110516, end: 20110518
  5. CIPROFLOXACIN [Concomitant]
     Indication: INFECTION PROPHYLAXIS
     Route: 065
  6. PLATELETS [Concomitant]
     Indication: TRANSFUSION
     Route: 041
     Dates: start: 20110520
  7. RED BLOOD CELLS [Concomitant]
     Indication: TRANSFUSION
     Route: 041
     Dates: start: 20110518
  8. RED BLOOD CELLS [Concomitant]
     Route: 041
     Dates: start: 20110518

REACTIONS (9)
  - DEATH [None]
  - GRANULOCYTES ABNORMAL [None]
  - PLATELET COUNT DECREASED [None]
  - PANCYTOPENIA [None]
  - ASTHENIA [None]
  - HAEMOGLOBIN DECREASED [None]
  - MYELODYSPLASTIC SYNDROME [None]
  - GENERAL PHYSICAL HEALTH DETERIORATION [None]
  - WHITE BLOOD CELL COUNT DECREASED [None]
